FAERS Safety Report 4622430-5 (Version None)
Quarter: 2005Q1

REPORT INFORMATION
  Report Type: 
  Country: None (occurrence: None)
  Receive Date: 20050325
  Receipt Date: 20050325
  Transmission Date: 20050727
  Serious: Yes (Death)
  Sender: FDA-Public Use
  Company Number: None

PATIENT
  Sex: Male

DRUGS (4)
  1. TAXOL [Suspect]
     Dosage: 40 MG/M2  IV Q WK X 6
     Route: 042
     Dates: start: 20030604, end: 20030714
  2. GEMZAR [Suspect]
     Dosage: 75 MG/M2 IV Q WK X 6
     Route: 042
     Dates: start: 20030604, end: 20030714
  3. TARCEVA [Suspect]
     Dosage: 100 MG /D
     Dates: start: 20030604, end: 20030807
  4. TARCEVA [Suspect]
     Dosage: 150MG/D
     Dates: start: 20030808, end: 20050213

REACTIONS (4)
  - BACK PAIN [None]
  - DISEASE RECURRENCE [None]
  - GENERAL PHYSICAL HEALTH DETERIORATION [None]
  - WEIGHT DECREASED [None]
